FAERS Safety Report 4877712-9 (Version None)
Quarter: 2006Q1

REPORT INFORMATION
  Report Type: 
  Country: None (occurrence: None)
  Receive Date: 20060111
  Receipt Date: 20051228
  Transmission Date: 20060701
  Serious: Yes (Hospitalization)
  Sender: FDA-Public Use
  Company Number: FR-GILEAD-2006-0009058

PATIENT
  Age: 36 Year
  Sex: Female

DRUGS (8)
  1. VIREAD [Suspect]
     Route: 048
     Dates: start: 20051108
  2. VIREAD [Suspect]
     Dates: start: 20030101, end: 20031101
  3. EPIVIR [Suspect]
     Route: 048
     Dates: start: 20051108
  4. VIRAMUNE [Suspect]
     Dates: start: 20051108
  5. AUGMENTIN '125' [Suspect]
     Route: 048
     Dates: start: 20051201, end: 20051202
  6. IBUPROFEN [Suspect]
     Route: 048
     Dates: start: 20051201, end: 20051202
  7. EFFERALGAN [Concomitant]
     Route: 048
     Dates: start: 20051201, end: 20051202
  8. CLARITYNE [Concomitant]

REACTIONS (9)
  - ABDOMINAL PAIN [None]
  - CHILLS [None]
  - DIARRHOEA [None]
  - EYELID OEDEMA [None]
  - FACE OEDEMA [None]
  - PYREXIA [None]
  - RASH [None]
  - RASH GENERALISED [None]
  - THROMBOCYTOPENIA [None]
